FAERS Safety Report 8608421-8 (Version None)
Quarter: 2012Q3

REPORT INFORMATION
  Report Type: 
  Country: None (occurrence: None)
  Receive Date: 20120821
  Receipt Date: 20120814
  Transmission Date: 20120928
  Serious: Yes (Hospitalization)
  Sender: FDA-Public Use
  Company Number: US-ACTELION-A-US2012-69186

PATIENT
  Age: 68 Year
  Sex: Female

DRUGS (3)
  1. SILDENAFIL [Concomitant]
  2. TRACLEER [Suspect]
     Indication: PULMONARY ARTERIAL HYPERTENSION
     Dosage: UNK
     Route: 048
  3. REMODULIN [Concomitant]

REACTIONS (3)
  - CONSTIPATION [None]
  - HEPATIC CIRRHOSIS [None]
  - ABDOMINAL PAIN [None]
